FAERS Safety Report 5064872-2 (Version None)
Quarter: 2006Q3

REPORT INFORMATION
  Report Type: 
  Country: None (occurrence: None)
  Receive Date: 20060725
  Receipt Date: 20060706
  Transmission Date: 20061208
  Serious: Yes (Hospitalization)
  Sender: FDA-Public Use
  Company Number: US200607000923

PATIENT
  Sex: Female

DRUGS (2)
  1. FORTEO [Suspect]
     Indication: OSTEOPOROSIS
     Dates: start: 20060501, end: 20060607
  2. FORTEO PEN (FORTEO PEN) [Concomitant]

REACTIONS (4)
  - ARRHYTHMIA [None]
  - BACK PAIN [None]
  - CLOSTRIDIAL INFECTION [None]
  - HIP ARTHROPLASTY [None]
